FAERS Safety Report 6841331-5 (Version None)
Quarter: 2010Q3

REPORT INFORMATION
  Report Type: 
  Country: None (occurrence: None)
  Receive Date: 20100714
  Receipt Date: 20070808
  Transmission Date: 20110219
  Serious: No
  Sender: FDA-Public Use
  Company Number: US-PFIZER INC-2007054046

PATIENT
  Sex: Female

DRUGS (1)
  1. CHANTIX [Suspect]
     Dates: start: 20070528, end: 20070618

REACTIONS (4)
  - ABDOMINAL PAIN LOWER [None]
  - CIRCADIAN RHYTHM SLEEP DISORDER [None]
  - DECREASED APPETITE [None]
  - NAUSEA [None]
